FAERS Safety Report 6538095-1 (Version None)
Quarter: 2010Q1

REPORT INFORMATION
  Report Type: 
  Country: None (occurrence: None)
  Receive Date: 20100114
  Receipt Date: 20100107
  Transmission Date: 20100710
  Serious: Yes (Hospitalization)
  Sender: FDA-Public Use
  Company Number: PL-AMGEN-QUU382375

PATIENT
  Sex: Female
  Weight: 78.3 kg

DRUGS (8)
  1. ARANESP [Suspect]
     Indication: DIALYSIS
     Route: 042
     Dates: start: 20090812
  2. ACENOCOUMAROL [Suspect]
     Route: 048
     Dates: start: 20090415, end: 20091201
  3. LEVOTHYROXINE SODIUM [Suspect]
     Route: 048
     Dates: start: 20081025, end: 20091201
  4. BETAXOLOL [Concomitant]
     Route: 048
     Dates: start: 20071211, end: 20091219
  5. ALLOPURINOL [Concomitant]
     Route: 048
     Dates: start: 20070227
  6. PIRACETAM [Concomitant]
     Route: 048
     Dates: start: 20070221
  7. ATORVASTATIN [Concomitant]
     Route: 048
     Dates: start: 20071017
  8. TRIMETAZIDINE [Concomitant]
     Route: 048
     Dates: start: 20090703

REACTIONS (2)
  - ACUTE MYOCARDIAL INFARCTION [None]
  - CORONARY ARTERY DISEASE [None]
